FAERS Safety Report 15728337 (Version 2)
Quarter: 2018Q4

REPORT INFORMATION
  Report Type: Spontaneous
  Country: PT (occurrence: PT)
  Receive Date: 20181217
  Receipt Date: 20181227
  Transmission Date: 20190205
  Serious: Yes (Hospitalization)
  Sender: FDA-Public Use
  Company Number: PT-B.I. PHARMACEUTICALS,INC./RIDGEFIELD-2018-BI-059760

PATIENT
  Age: 42 Year
  Sex: Male

DRUGS (1)
  1. MICARDIS PLUS [Suspect]
     Active Substance: HYDROCHLOROTHIAZIDE\TELMISARTAN
     Indication: HYPERTENSION
     Dosage: FORM STRENGTH: 80 + 25 MILLIGRAM
     Route: 065

REACTIONS (4)
  - Myocardial fibrosis [Unknown]
  - Drug abuse [Unknown]
  - Left ventricular hypertrophy [Unknown]
  - Pericarditis [Unknown]
